FAERS Safety Report 26196372 (Version 1)
Quarter: 2025Q4

REPORT INFORMATION
  Report Type: Report from Study
  Country: US (occurrence: US)
  Receive Date: 20251224
  Receipt Date: 20251224
  Transmission Date: 20260118
  Serious: Yes (Death)
  Sender: TEVA
  Company Number: US-TEVA-VS-3405722

PATIENT
  Age: 69 Year
  Sex: Female

DRUGS (3)
  1. AUSTEDO XR [Suspect]
     Active Substance: DEUTETRABENAZINE
     Indication: Generalised anxiety disorder
     Dosage: TAKE 1 TABLET BY MOUTH DAILY
     Route: 048
  2. VITAMINS [Concomitant]
     Active Substance: VITAMINS
     Indication: Product used for unknown indication
     Dosage: MULTIPLE
  3. VITAMIN B COMPLEX [Concomitant]
     Active Substance: CYANOCOBALAMIN\DEXPANTHENOL\NIACINAMIDE\PYRIDOXINE HYDROCHLORIDE\RIBOFLAVIN 5^-PHOSPHATE SODIUM\THIA
     Indication: Product used for unknown indication

REACTIONS (2)
  - Death [Fatal]
  - Product use in unapproved indication [Unknown]
